FAERS Safety Report 9379184 (Version 1)
Quarter: 2013Q3

REPORT INFORMATION
  Report Type: Spontaneous
  Country: US (occurrence: US)
  Receive Date: 20130702
  Receipt Date: 20130702
  Transmission Date: 20140515
  Serious: Yes (Other)
  Sender: FDA-Public Use
  Company Number: US-BAYER-2012-090250

PATIENT
  Age: 73 Year
  Sex: Female
  Weight: 60 kg

DRUGS (5)
  1. BETASERON [Suspect]
     Indication: MULTIPLE SCLEROSIS
     Dosage: 0.25 MG, QOD
     Route: 058
     Dates: start: 20120503
  2. BETASERON [Suspect]
     Indication: MULTIPLE SCLEROSIS
  3. CALCIUM [Concomitant]
  4. ZYRTEC [Concomitant]
     Dosage: 1 DF, QD
  5. MULTIVITAMINS [Concomitant]
     Dosage: 1 DF, QD

REACTIONS (4)
  - Multiple sclerosis [Recovered/Resolved]
  - Balance disorder [Recovered/Resolved]
  - Gait disturbance [Recovered/Resolved]
  - Coordination abnormal [Recovered/Resolved]
